FAERS Safety Report 18024358 (Version 5)
Quarter: 2021Q1

REPORT INFORMATION
  Report Type: Other
  Country: CN (occurrence: CN)
  Receive Date: 20200714
  Receipt Date: 20210316
  Transmission Date: 20210419
  Serious: Yes (Other)
  Sender: FDA-Public Use
  Company Number: CN-ROCHE-2612063

PATIENT
  Age: 38 Year
  Sex: Male
  Weight: 62 kg

DRUGS (15)
  1. ATEZOLIZUMAB. [Suspect]
     Active Substance: ATEZOLIZUMAB
     Route: 042
     Dates: start: 20201016, end: 20201016
  2. ETOPOSIDE. [Suspect]
     Active Substance: ETOPOSIDE
     Dosage: 75 MG/M2
     Route: 042
     Dates: start: 20200718, end: 20200721
  3. CARBOPLATIN. [Suspect]
     Active Substance: CARBOPLATIN
     Dosage: AUC=5
     Route: 041
     Dates: start: 20200624, end: 20200625
  4. ATEZOLIZUMAB. [Suspect]
     Active Substance: ATEZOLIZUMAB
     Dosage: 15MG/KG
     Route: 042
     Dates: start: 20200624, end: 20200625
  5. ATEZOLIZUMAB. [Suspect]
     Active Substance: ATEZOLIZUMAB
     Dosage: 15 MG/KG
     Route: 042
     Dates: start: 20200718, end: 20200719
  6. ETOPOSIDE. [Suspect]
     Active Substance: ETOPOSIDE
     Indication: SMALL CELL LUNG CANCER
     Dosage: 100MG/M2
     Route: 041
     Dates: start: 20200513, end: 20200516
  7. ATEZOLIZUMAB. [Suspect]
     Active Substance: ATEZOLIZUMAB
     Indication: SMALL CELL LUNG CANCER
     Dosage: 15MG/KG
     Route: 041
     Dates: start: 20200513, end: 20200514
  8. ETOPOSIDE. [Suspect]
     Active Substance: ETOPOSIDE
     Dosage: 100MG/M2
     Route: 041
     Dates: start: 20200624, end: 20200627
  9. MANNITOL. [Concomitant]
     Active Substance: MANNITOL
     Route: 041
     Dates: start: 20201018, end: 20201024
  10. ETOPOSIDE. [Suspect]
     Active Substance: ETOPOSIDE
     Dosage: 100MG/M2
     Route: 041
     Dates: start: 20200603, end: 20200604
  11. CARBOPLATIN. [Suspect]
     Active Substance: CARBOPLATIN
     Dosage: AUC = 3.75
     Route: 042
     Dates: start: 20200718, end: 20200719
  12. MANNITOL. [Concomitant]
     Active Substance: MANNITOL
     Route: 041
     Dates: start: 20201012, end: 20201016
  13. ATEZOLIZUMAB. [Suspect]
     Active Substance: ATEZOLIZUMAB
     Dosage: 15MG/KG
     Route: 041
     Dates: start: 20200603, end: 20200604
  14. CARBOPLATIN. [Suspect]
     Active Substance: CARBOPLATIN
     Indication: SMALL CELL LUNG CANCER
     Dosage: AUC=5
     Route: 041
     Dates: start: 20200513, end: 20200514
  15. CARBOPLATIN. [Suspect]
     Active Substance: CARBOPLATIN
     Dosage: AUC=5
     Route: 041
     Dates: start: 20200603, end: 20200604

REACTIONS (8)
  - Platelet count decreased [Not Recovered/Not Resolved]
  - White blood cell count decreased [Not Recovered/Not Resolved]
  - Alanine aminotransferase increased [Not Recovered/Not Resolved]
  - Haemoglobin decreased [Not Recovered/Not Resolved]
  - Neutrophil count decreased [Not Recovered/Not Resolved]
  - Blood thyroid stimulating hormone increased [Not Recovered/Not Resolved]
  - Alanine aminotransferase increased [Not Recovered/Not Resolved]
  - Alanine aminotransferase increased [Not Recovered/Not Resolved]

NARRATIVE: CASE EVENT DATE: 20200527
